FAERS Safety Report 13051209 (Version 1)
Quarter: 2016Q4

REPORT INFORMATION
  Report Type: Spontaneous
  Country: US (occurrence: US)
  Receive Date: 20161221
  Receipt Date: 20161221
  Transmission Date: 20170207
  Serious: No
  Sender: FDA-Public Use
  Company Number: US-ENDO PHARMACEUTICALS INC.-2016-007185

PATIENT
  Age: 69 Year
  Sex: Male
  Weight: 99.88 kg

DRUGS (3)
  1. OPANA ER [Suspect]
     Active Substance: OXYMORPHONE HYDROCHLORIDE
     Route: 065
     Dates: start: 2014, end: 20161203
  2. OPANA ER [Suspect]
     Active Substance: OXYMORPHONE HYDROCHLORIDE
     Indication: PAIN
     Route: 065
     Dates: start: 20161205
  3. OPANA ER [Suspect]
     Active Substance: OXYMORPHONE HYDROCHLORIDE
     Route: 065
     Dates: start: 2013, end: 2014

REACTIONS (2)
  - Unevaluable event [Unknown]
  - Feeling jittery [Unknown]

NARRATIVE: CASE EVENT DATE: 20161205
